FAERS Safety Report 9410555 (Version 2)
Quarter: 2013Q3

REPORT INFORMATION
  Report Type: Report from Study
  Country: JP (occurrence: JP)
  Receive Date: 20130719
  Receipt Date: 20130805
  Transmission Date: 20140515
  Serious: Yes (Death, Other)
  Sender: FDA-Public Use
  Company Number: JP-OTSUKA-JP-2013-12613

PATIENT
  Age: 78 Year
  Sex: Male
  Weight: 74.3 kg

DRUGS (6)
  1. SAMSCA [Suspect]
     Indication: FLUID RETENTION
     Dosage: 7.5 MG MILLIGRAM(S), QAM
     Route: 048
     Dates: start: 20120823, end: 20120825
  2. SAMSCA [Suspect]
     Dosage: 15 MG MILLIGRAM(S), QAM
     Route: 048
     Dates: start: 20120826, end: 20120906
  3. FUROSEMIDE [Concomitant]
     Indication: CARDIAC FAILURE
     Dosage: 40 MG MILLIGRAM(S), DAILY DOSE
     Route: 048
  4. BLOPRESS [Concomitant]
     Indication: HYPERTENSION
     Dosage: 8 MG MILLIGRAM(S), DAILY DOSE
     Route: 048
  5. ALOSITOL [Concomitant]
     Indication: HYPERURICAEMIA
     Dosage: 100 MG MILLIGRAM(S), DAILY DOSE
     Route: 048
  6. BAYASPIRIN [Concomitant]
     Indication: ANGINA PECTORIS
     Dosage: 100 MG MILLIGRAM(S), DAILY DOSE
     Route: 048

REACTIONS (2)
  - Renal failure acute [Fatal]
  - Dehydration [Unknown]
